FAERS Safety Report 10033779 (Version 2)
Quarter: 2014Q2

REPORT INFORMATION
  Report Type: Spontaneous
  Country: US (occurrence: US)
  Receive Date: 20140325
  Receipt Date: 20140404
  Transmission Date: 20141212
  Serious: No
  Sender: FDA-Public Use
  Company Number: US-BIOGENIDEC-2014BI024839

PATIENT
  Age: 64 Year
  Sex: Female

DRUGS (17)
  1. TECFIDERA [Suspect]
     Indication: MULTIPLE SCLEROSIS
     Route: 048
     Dates: start: 20130610
  2. BENADRYL [Concomitant]
  3. DOXYCYCLINE HYCLATE [Concomitant]
  4. VALIUM [Concomitant]
  5. ADVIL [Concomitant]
  6. AMBIEN [Concomitant]
  7. ASPIRIN [Concomitant]
  8. BENADRYL [Concomitant]
  9. EVISTA [Concomitant]
  10. FLAX SEED OIL [Concomitant]
  11. FLUOXETINE HCL [Concomitant]
  12. INDERAL [Concomitant]
  13. NAPROXEN DR [Concomitant]
  14. NIACIN [Concomitant]
  15. PROZAC [Concomitant]
  16. REQUIP [Concomitant]
  17. SIMVASTATIN [Concomitant]

REACTIONS (5)
  - Asthenia [Not Recovered/Not Resolved]
  - Fatigue [Not Recovered/Not Resolved]
  - Balance disorder [Not Recovered/Not Resolved]
  - Pain [Not Recovered/Not Resolved]
  - Multiple sclerosis relapse [Not Recovered/Not Resolved]
